FAERS Safety Report 7948488-3 (Version None)
Quarter: 2011Q4

REPORT INFORMATION
  Report Type: 
  Country: None (occurrence: None)
  Receive Date: 20111123
  Receipt Date: 20111110
  Transmission Date: 20120403
  Serious: Yes (Other)
  Sender: FDA-Public Use
  Company Number: 2011S1000359

PATIENT
  Age: 19 Day
  Sex: Male

DRUGS (5)
  1. INOMAX [Suspect]
  2. DOPAMINE HCL [Concomitant]
  3. INOMAX [Suspect]
     Indication: PULMONARY HYPERTENSION
     Dosage: 20 PPM;CONT;INH 1 PPM;CONT;INH
     Route: 055
     Dates: start: 20111110
  4. INOMAX [Suspect]
     Indication: PULMONARY HYPERTENSION
     Dosage: 20 PPM;CONT;INH 1 PPM;CONT;INH
     Route: 055
     Dates: end: 20111115
  5. MORPHINE [Concomitant]

REACTIONS (3)
  - BRONCHIAL SECRETION RETENTION [None]
  - DEVICE MISUSE [None]
  - NEONATAL HYPOXIA [None]
